FAERS Safety Report 12876690 (Version 1)
Quarter: 2016Q4

REPORT INFORMATION
  Report Type: Spontaneous
  Country: US (occurrence: US)
  Receive Date: 20161024
  Receipt Date: 20161024
  Transmission Date: 20170207
  Serious: Yes (Disabling)
  Sender: FDA-Public Use
  Company Number: None

PATIENT
  Age: 65 Year
  Sex: Female
  Weight: 139.38 kg

DRUGS (15)
  1. LEVOTHYROXINE. [Concomitant]
     Active Substance: LEVOTHYROXINE
  2. VITAMIN D [Concomitant]
     Active Substance: CHOLECALCIFEROL
  3. LORAZEPAN [Concomitant]
     Active Substance: LORAZEPAM
  4. SERTRALINE [Concomitant]
     Active Substance: SERTRALINE HYDROCHLORIDE
  5. VITAMIN E [Concomitant]
     Active Substance: .ALPHA.-TOCOPHEROL
  6. FISH OIL [Concomitant]
     Active Substance: FISH OIL
  7. RANITINE [Concomitant]
  8. METOPROLOL. [Concomitant]
     Active Substance: METOPROLOL
  9. TIZANIDINE HCL [Suspect]
     Active Substance: TIZANIDINE HYDROCHLORIDE
     Indication: PARKINSON^S DISEASE
     Dosage: 2MG 3 PILLS 3 X DAILY MOUTH
     Route: 048
  10. LOSARTAN. [Concomitant]
     Active Substance: LOSARTAN
  11. VITIMANS [Concomitant]
  12. SIMVASTIN [Concomitant]
     Active Substance: SIMVASTATIN
  13. VITAMIN C [Concomitant]
     Active Substance: ASCORBIC ACID
  14. TIZANIDINE HCL [Suspect]
     Active Substance: TIZANIDINE HYDROCHLORIDE
     Indication: TREMOR
     Dosage: 2MG 3 PILLS 3 X DAILY MOUTH
     Route: 048
  15. PRAMIPEXOLE. [Concomitant]
     Active Substance: PRAMIPEXOLE

REACTIONS (3)
  - Kidney infection [None]
  - Urinary tract infection [None]
  - Haemorrhage [None]

NARRATIVE: CASE EVENT DATE: 20160801
